FAERS Safety Report 17116929 (Version 2)
Quarter: 2019Q4

REPORT INFORMATION
  Report Type: Spontaneous
  Country: US (occurrence: US)
  Receive Date: 20191205
  Receipt Date: 20191230
  Transmission Date: 20200122
  Serious: Yes (Other)
  Sender: FDA-Public Use
  Company Number: US-AKORN PHARMACEUTICALS-2019AKN02452

PATIENT
  Age: 15 Year
  Sex: Female
  Weight: 52.15 kg

DRUGS (3)
  1. MYORISAN [Suspect]
     Active Substance: ISOTRETINOIN
     Indication: ACNE
     Dosage: 1 CAPSULES, 1X/DAY
     Route: 048
     Dates: start: 20190614, end: 20191106
  2. NAPROXEN. [Concomitant]
     Active Substance: NAPROXEN
  3. CLARAVIS [Suspect]
     Active Substance: ISOTRETINOIN
     Dosage: 1 CAPSULES, 1X/DAY
     Route: 048
     Dates: start: 20190717, end: 2019

REACTIONS (3)
  - Mood altered [Recovered/Resolved]
  - Crying [Recovered/Resolved]
  - Off label use [Recovered/Resolved]

NARRATIVE: CASE EVENT DATE: 2019
